FAERS Safety Report 9799174 (Version 1)
Quarter: 2014Q1

REPORT INFORMATION
  Report Type: Spontaneous
  Country: US (occurrence: US)
  Receive Date: 20140106
  Receipt Date: 20140106
  Transmission Date: 20141002
  Serious: No
  Sender: FDA-Public Use
  Company Number: US-GILEAD-2010-0034101

PATIENT
  Age: 35 Year
  Sex: Female

DRUGS (2)
  1. LETAIRIS [Suspect]
     Indication: PULMONARY ARTERIAL HYPERTENSION
     Route: 048
     Dates: start: 200712
  2. LETAIRIS [Suspect]
     Dates: start: 200707

REACTIONS (2)
  - Pain in extremity [Unknown]
  - Oedema peripheral [Not Recovered/Not Resolved]
